FAERS Safety Report 23764765 (Version 1)
Quarter: 2024Q2

REPORT INFORMATION
  Report Type: Spontaneous
  Country: US (occurrence: US)
  Receive Date: 20240420
  Receipt Date: 20240420
  Transmission Date: 20240716
  Serious: No
  Sender: FDA-Public Use
  Company Number: US-HALEON-2167935

PATIENT
  Age: 36 Year
  Sex: Female

DRUGS (2)
  1. SENSODYNE PRONAMEL INTENSIVE ENAMEL REPAIR WHITENING [Suspect]
     Active Substance: POTASSIUM NITRATE\SODIUM FLUORIDE
     Indication: Dental disorder prophylaxis
     Dosage: EXPDATE:202603 LOT AND EXPIRATION DATE WAS SAME FOR 3 TUBES.
     Dates: start: 20240305, end: 20240402
  2. SENSODYNE PRONAMEL INTENSIVE ENAMEL REPAIR WHITENING [Suspect]
     Active Substance: POTASSIUM NITRATE\SODIUM FLUORIDE
     Dosage: EXPDATE:202501 LOT NUMBER AND EXPIRATION DATE OF THE FOURTH TUBE.
     Dates: start: 20240305, end: 20240402

REACTIONS (4)
  - Toothache [Unknown]
  - Gingival bleeding [Unknown]
  - Dental caries [Unknown]
  - Drug effect less than expected [Unknown]

NARRATIVE: CASE EVENT DATE: 20240301
